FAERS Safety Report 14835975 (Version 1)
Quarter: 2018Q2

REPORT INFORMATION
  Report Type: Spontaneous
  Country: CN (occurrence: CN)
  Receive Date: 20180502
  Receipt Date: 20180502
  Transmission Date: 20180711
  Serious: Yes (Hospitalization)
  Sender: FDA-Public Use
  Company Number: CN-NOVOPROD-597248

PATIENT
  Age: 65 Year
  Sex: Male
  Weight: 58 kg

DRUGS (4)
  1. LEVEMIR [Suspect]
     Active Substance: INSULIN DETEMIR
     Indication: DIABETIC KETOACIDOSIS
     Dosage: 17 U, QD
     Route: 058
     Dates: start: 20180117
  2. LEVEMIR [Suspect]
     Active Substance: INSULIN DETEMIR
     Indication: TYPE 2 DIABETES MELLITUS
     Dosage: 22 U, QD
     Route: 058
     Dates: start: 20180113
  3. NOVORAPID [Suspect]
     Active Substance: INSULIN ASPART
     Indication: TYPE 2 DIABETES MELLITUS
     Dosage: 34 U, QD (12U IN THE MORNING + 12U AT NOON + 10U IN THE EVENING)
     Route: 058
     Dates: start: 20180113
  4. NOVORAPID [Suspect]
     Active Substance: INSULIN ASPART
     Indication: DIABETIC KETOACIDOSIS

REACTIONS (4)
  - Abdominal distension [Not Recovered/Not Resolved]
  - Hypokalaemia [Unknown]
  - Scrotal oedema [Not Recovered/Not Resolved]
  - Oedema [Not Recovered/Not Resolved]

NARRATIVE: CASE EVENT DATE: 20180113
